FAERS Safety Report 9340224 (Version 1)
Quarter: 2013Q2

REPORT INFORMATION
  Report Type: Spontaneous
  Country: US (occurrence: None)
  Receive Date: 20130610
  Receipt Date: 20130610
  Transmission Date: 20140414
  Serious: No
  Sender: FDA-Public Use
  Company Number: None

PATIENT
  Age: 56 Year
  Sex: Male
  Weight: 86.3 kg

DRUGS (1)
  1. HYDROCHLOROTHIAZIDE/LISINOPRIL [Suspect]
     Indication: HYPERTENSION
     Dosage: MG
     Route: 048

REACTIONS (2)
  - Lip swelling [None]
  - Swelling face [None]
